FAERS Safety Report 6748964-5 (Version None)
Quarter: 2010Q2

REPORT INFORMATION
  Report Type: 
  Country: None (occurrence: None)
  Receive Date: 20100601
  Receipt Date: 20100402
  Transmission Date: 20101027
  Serious: Yes (Hospitalization, Other)
  Sender: FDA-Public Use
  Company Number: US-BAYER-201016253NA

PATIENT
  Age: 32 Year
  Sex: Female
  Weight: 48 kg

DRUGS (9)
  1. YAZ [Suspect]
     Indication: ACNE
     Route: 048
     Dates: start: 20080613, end: 20080715
  2. YASMIN [Suspect]
     Indication: ACNE
     Route: 048
     Dates: start: 20070512
  3. OCELLA [Suspect]
     Indication: DRUG USE FOR UNKNOWN INDICATION
  4. CELEXA [Concomitant]
     Indication: DEPRESSION
     Dates: start: 20080801
  5. ZOLOFT [Concomitant]
     Indication: DEPRESSION
     Dates: start: 20021001, end: 20071001
  6. IBUPROFEN [Concomitant]
     Indication: DRUG USE FOR UNKNOWN INDICATION
     Dosage: FOR A LONG TIME
  7. ANTIBIOTICS [Concomitant]
     Indication: DRUG USE FOR UNKNOWN INDICATION
     Dates: start: 20080401
  8. COUMADIN [Concomitant]
     Route: 048
  9. FERROUS SULFATE TAB [Concomitant]
     Route: 048

REACTIONS (7)
  - APHASIA [None]
  - BASAL GANGLIA INFARCTION [None]
  - CEREBRAL INFARCTION [None]
  - DEEP VEIN THROMBOSIS [None]
  - FACIAL PALSY [None]
  - HEMIPARESIS [None]
  - SPEECH DISORDER [None]
